FAERS Safety Report 18953793 (Version 2)
Quarter: 2021Q2

REPORT INFORMATION
  Report Type: Spontaneous
  Country: US (occurrence: US)
  Receive Date: 20210301
  Receipt Date: 20210517
  Transmission Date: 20210717
  Serious: Yes (Death, Other)
  Sender: FDA-Public Use
  Company Number: US-GLAXOSMITHKLINE-US2021GSK045252

PATIENT
  Sex: Female

DRUGS (2)
  1. ZANTAC [Suspect]
     Active Substance: RANITIDINE HYDROCHLORIDE
     Indication: ABDOMINAL DISCOMFORT
     Dosage: OCCASIONAL|150 MG|OVER THE COUNTER
     Route: 065
     Dates: start: 200001, end: 201806
  2. ZANTAC [Suspect]
     Active Substance: RANITIDINE HYDROCHLORIDE
     Indication: ABDOMINAL DISCOMFORT
     Dosage: OCCASIONAL|150 MG|OVER THE COUNTER
     Route: 065
     Dates: start: 200001, end: 201806

REACTIONS (1)
  - Lung neoplasm malignant [Fatal]
